FAERS Safety Report 5937771-9 (Version None)
Quarter: 2008Q4

REPORT INFORMATION
  Report Type: 
  Country: None (occurrence: None)
  Receive Date: 20081031
  Receipt Date: 20081024
  Transmission Date: 20090506
  Serious: Yes (Other)
  Sender: FDA-Public Use
  Company Number: DE-GENENTECH-270539

PATIENT

DRUGS (3)
  1. ACTIVASE [Suspect]
     Indication: PERIPHERAL ISCHAEMIA
     Dosage: 10 MG, SINGLE
     Route: 013
  2. ACTIVASE [Suspect]
     Dosage: 1 MG/HR, CONTINUOUS
     Route: 013
  3. ANTICOAGULANT [Suspect]
     Indication: PERIPHERAL ISCHAEMIA
     Dosage: UNK

REACTIONS (1)
  - VASCULAR PSEUDOANEURYSM [None]
